FAERS Safety Report 7646904-8 (Version None)
Quarter: 2011Q3

REPORT INFORMATION
  Report Type: 
  Country: None (occurrence: None)
  Receive Date: 20110801
  Receipt Date: 20110726
  Transmission Date: 20111222
  Serious: Yes (Other)
  Sender: FDA-Public Use
  Company Number: US-SANOFI-AVENTIS-2011SA034291

PATIENT
  Age: 68 Year
  Sex: Female

DRUGS (12)
  1. CHONDROITIN W/GLUCOSAMINE [Concomitant]
  2. TONICS [Concomitant]
  3. ZINC [Concomitant]
  4. MULTAQ [Suspect]
     Indication: ATRIAL FIBRILLATION
     Route: 048
     Dates: start: 20100501
  5. LISINOPRIL [Concomitant]
  6. WARFARIN SODIUM [Concomitant]
  7. FOLIC ACID [Concomitant]
  8. COLACE [Concomitant]
  9. ASPIRIN [Concomitant]
  10. VITAMIN TAB [Concomitant]
  11. CALCIUM ACETATE [Concomitant]
  12. ATENOLOL [Concomitant]

REACTIONS (12)
  - DYSPNOEA [None]
  - HEADACHE [None]
  - ATRIAL FIBRILLATION [None]
  - BACK PAIN [None]
  - VERTIGO [None]
  - DIZZINESS [None]
  - BOWEL MOVEMENT IRREGULARITY [None]
  - BRADYCARDIA [None]
  - ATRIAL FLUTTER [None]
  - BLOOD ELECTROLYTES ABNORMAL [None]
  - HYPERHIDROSIS [None]
  - HAEMOGLOBIN DECREASED [None]
